FAERS Safety Report 16467701 (Version 1)
Quarter: 2019Q2

REPORT INFORMATION
  Report Type: Spontaneous
  Country: GB (occurrence: GB)
  Receive Date: 20190624
  Receipt Date: 20190624
  Transmission Date: 20190711
  Serious: Yes (Disabling, Other)
  Sender: FDA-Public Use
  Company Number: GB-TEVA-2019-GB-1067058

PATIENT
  Age: 29 Year
  Sex: Female
  Weight: 146 kg

DRUGS (2)
  1. VENLAFAXINE [Suspect]
     Active Substance: VENLAFAXINE HYDROCHLORIDE
     Indication: DEPRESSION SUICIDAL
     Route: 048
     Dates: start: 20190303
  2. LORAZEPAM. [Concomitant]
     Active Substance: LORAZEPAM

REACTIONS (3)
  - Nightmare [Not Recovered/Not Resolved]
  - Nausea [Recovering/Resolving]
  - Insomnia [Not Recovered/Not Resolved]
